FAERS Safety Report 5477027-4 (Version None)
Quarter: 2007Q4

REPORT INFORMATION
  Report Type: 
  Country: None (occurrence: None)
  Receive Date: 20071004
  Receipt Date: 20070925
  Transmission Date: 20080405
  Serious: Yes (Hospitalization)
  Sender: FDA-Public Use
  Company Number: US-AMGEN-QUU245033

PATIENT
  Sex: Female

DRUGS (1)
  1. ENBREL [Suspect]
     Indication: DRUG USE FOR UNKNOWN INDICATION
     Route: 058
     Dates: start: 20001120

REACTIONS (6)
  - APNOEA [None]
  - CONTUSION [None]
  - CORONARY ARTERY BYPASS [None]
  - NASOPHARYNGITIS [None]
  - SKIN ATROPHY [None]
  - STOMATITIS [None]
